FAERS Safety Report 6979743-1 (Version None)
Quarter: 2010Q3

REPORT INFORMATION
  Report Type: 
  Country: None (occurrence: None)
  Receive Date: 20100914
  Receipt Date: 20100903
  Transmission Date: 20110219
  Serious: Yes (Hospitalization)
  Sender: FDA-Public Use
  Company Number: DE-ELI_LILLY_AND_COMPANY-DE201005005493

PATIENT
  Sex: Male
  Weight: 93 kg

DRUGS (11)
  1. PEMETREXED [Suspect]
     Indication: NON-SMALL CELL LUNG CANCER
     Dosage: 500 MG/M2, ON DAY 1 EVERY 21 DAYS
     Route: 042
  2. CISPLATIN [Suspect]
     Indication: NON-SMALL CELL LUNG CANCER
     Dosage: 75 MG/M2, ON DAY 1 EVERY 21 DAYS
     Route: 042
  3. PEMETREXED [Suspect]
     Dosage: UNK, ON DAY 1 EVERY 21 DAYS
     Route: 042
     Dates: start: 20091202, end: 20100519
  4. FOLIC ACID [Concomitant]
     Indication: PROPHYLAXIS
     Dosage: UNK, UNKNOWN
     Dates: start: 20090814
  5. VITAMIN B-12 [Concomitant]
     Indication: PROPHYLAXIS
     Dosage: UNK, UNKNOWN
     Dates: start: 20100224, end: 20100224
  6. DEXAMETHASONE [Concomitant]
     Indication: PROPHYLAXIS
     Dosage: UNK, UNKNOWN
     Dates: start: 20100428, end: 20100430
  7. PANTOPRAZOLE SODIUM [Concomitant]
     Indication: PROPHYLAXIS
     Dosage: UNK, UNKNOWN
     Dates: start: 20090907
  8. METOPROLOL SUCCINATE [Concomitant]
     Dosage: UNK, UNKNOWN
     Dates: start: 20040101
  9. AMLODIPINE [Concomitant]
     Dosage: UNK, UNKNOWN
     Dates: start: 20040101
  10. ASPIRIN [Concomitant]
     Indication: PROPHYLAXIS
     Dosage: UNK, UNKNOWN
     Dates: start: 20091015
  11. TORASEMIDE [Concomitant]
     Dosage: UNK, UNKNOWN
     Dates: start: 20100412

REACTIONS (2)
  - ERYSIPELAS [None]
  - PLEURAL EFFUSION [None]
